FAERS Safety Report 14956996 (Version 5)
Quarter: 2019Q2

REPORT INFORMATION
  Report Type: Spontaneous
  Country: JP (occurrence: JP)
  Receive Date: 20180531
  Receipt Date: 20190611
  Transmission Date: 20190711
  Serious: Yes (Hospitalization)
  Sender: FDA-Public Use
  Company Number: PHJP2018JP011678

PATIENT
  Sex: Male
  Weight: 85.6 kg

DRUGS (1)
  1. GILENYA [Suspect]
     Active Substance: FINGOLIMOD HYDROCHLORIDE
     Indication: MULTIPLE SCLEROSIS RELAPSE PROPHYLAXIS
     Dosage: 0.5 MG, UNK
     Route: 048
     Dates: start: 20140114, end: 20180129

REACTIONS (11)
  - Spinal cord disorder [Not Recovered/Not Resolved]
  - Muscular weakness [Not Recovered/Not Resolved]
  - Rebound effect [Recovering/Resolving]
  - Multiple sclerosis relapse [Recovering/Resolving]
  - Muscle spasticity [Not Recovered/Not Resolved]
  - Hypoaesthesia [Recovering/Resolving]
  - Limb discomfort [Not Recovered/Not Resolved]
  - Disturbance in attention [Not Recovered/Not Resolved]
  - Paralysis [Not Recovered/Not Resolved]
  - Lymphocyte count decreased [Unknown]
  - Sensory disturbance [Not Recovered/Not Resolved]
